FAERS Safety Report 20467416 (Version 2)
Quarter: 2022Q1

REPORT INFORMATION
  Report Type: Spontaneous
  Country: JP (occurrence: JP)
  Receive Date: 20220214
  Receipt Date: 20220217
  Transmission Date: 20220423
  Serious: Yes (Death)
  Sender: FDA-Public Use
  Company Number: JP-SAKK-2022SA044989AA

PATIENT
  Sex: Male

DRUGS (1)
  1. MYOZYME [Suspect]
     Active Substance: ALGLUCOSIDASE ALFA
     Indication: Product used for unknown indication
     Dosage: DAILY DOSE: 29 VIALS
     Route: 041
     Dates: end: 20220124

REACTIONS (1)
  - Accident [Fatal]

NARRATIVE: CASE EVENT DATE: 20220101
